FAERS Safety Report 13815184 (Version 2)
Quarter: 2017Q3

REPORT INFORMATION
  Report Type: Spontaneous
  Country: IT (occurrence: IT)
  Receive Date: 20170731
  Receipt Date: 20170809
  Transmission Date: 20171127
  Serious: Yes (Other)
  Sender: FDA-Public Use
  Company Number: IT-PFIZER INC-2017323225

PATIENT
  Age: 57 Year
  Sex: Male
  Weight: 95 kg

DRUGS (2)
  1. PIPERACILLIN AND TAZOBACTAM [Suspect]
     Active Substance: PIPERACILLIN SODIUM\TAZOBACTAM SODIUM
     Indication: BACTERIAL INFECTION
     Dosage: 18 G, DAILY
     Route: 042
     Dates: start: 20170722, end: 20170723
  2. TARGOSID [Suspect]
     Active Substance: TEICOPLANIN
     Indication: BACTERIAL INFECTION
     Dosage: 1000 MG, DAILY (200 MG+ 2X 400 MG)
     Dates: start: 20170722, end: 20170723

REACTIONS (4)
  - Respiratory fatigue [Recovered/Resolved]
  - Cyanosis [Recovered/Resolved]
  - Swollen tongue [Recovered/Resolved]
  - Chills [Recovered/Resolved]

NARRATIVE: CASE EVENT DATE: 20170723
